FAERS Safety Report 20898444 (Version 1)
Quarter: 2022Q2

REPORT INFORMATION
  Report Type: Spontaneous
  Country: US (occurrence: US)
  Receive Date: 20220601
  Receipt Date: 20220601
  Transmission Date: 20220720
  Serious: Yes (Other)
  Sender: FDA-Public Use
  Company Number: US-BRISTOL-MYERS SQUIBB COMPANY-2022-044424

PATIENT
  Age: 53 Year
  Sex: Male
  Weight: 77 kg

DRUGS (1)
  1. NULOJIX [Suspect]
     Active Substance: BELATACEPT
     Indication: Lung disorder
     Dosage: DOSE : 387.5 MG;     FREQ : Q2 WEEKS X FOUR DOSES, THEN Q4 WEEKS
     Route: 042
     Dates: start: 20220413

REACTIONS (3)
  - Product storage error [Unknown]
  - Pneumonia [Unknown]
  - Off label use [Unknown]
